FAERS Safety Report 8533035-8 (Version None)
Quarter: 2012Q2

REPORT INFORMATION
  Report Type: 
  Country: None (occurrence: None)
  Receive Date: 20120412
  Receipt Date: 20110324
  Transmission Date: 20120825
  Serious: Yes (Other)
  Sender: FDA-Public Use
  Company Number: PHEH2010US03433

PATIENT

DRUGS (2)
  1. ZOMETA [Suspect]
     Dosage: , INJECTION NOS
  2. AREDIA [Suspect]
     Dosage: , INJECTION NOS

REACTIONS (6)
  - PAIN [None]
  - OSTEONECROSIS OF JAW [None]
  - INJURY [None]
  - ANXIETY [None]
  - DISABILITY [None]
  - ANHEDONIA [None]
